FAERS Safety Report 18176281 (Version 1)
Quarter: 2020Q3

REPORT INFORMATION
  Report Type: Spontaneous
  Country: SK (occurrence: SK)
  Receive Date: 20200820
  Receipt Date: 20200820
  Transmission Date: 20201103
  Serious: Yes (Life-Threatening)
  Sender: FDA-Public Use
  Company Number: SK-MYLANLABS-2020M1071434

PATIENT
  Age: 75 Year
  Sex: Female
  Weight: 73 kg

DRUGS (5)
  1. PREGABALIN MYLAN [Suspect]
     Active Substance: PREGABALIN
     Indication: INTERVERTEBRAL DISC PROTRUSION
  2. TEVAZOL [Concomitant]
     Indication: GASTRIC DISORDER
     Dosage: 0?0?1
  3. MIXOR [Concomitant]
     Indication: HYPERTENSION
     Dosage: 1 DOSAGE FORM
  4. RILMEX [Concomitant]
     Indication: HYPERTENSION
     Dosage: 1 MILLIGRAM
  5. PREGABALIN MYLAN [Suspect]
     Active Substance: PREGABALIN
     Indication: BACK PAIN
     Dosage: 300 MILLIGRAM, TOTAL
     Route: 048
     Dates: start: 202006, end: 202006

REACTIONS (8)
  - Vertigo [Recovered/Resolved]
  - Hypopnoea [Recovered/Resolved]
  - Vomiting [Recovered/Resolved]
  - Paralysis [Recovered/Resolved]
  - Hallucination [Recovered/Resolved]
  - Nausea [Recovered/Resolved]
  - Dry mouth [Recovered/Resolved]
  - Abdominal pain upper [Recovered/Resolved]

NARRATIVE: CASE EVENT DATE: 202006
